FAERS Safety Report 8862177 (Version 1)
Quarter: 2012Q4

REPORT INFORMATION
  Report Type: 
  Country: DE (occurrence: DE)
  Receive Date: 20121026
  Receipt Date: 20121026
  Transmission Date: 20130627
  Serious: Yes (Other)
  Sender: FDA-Public Use
  Company Number: DE-JNJFOC-20121012177

PATIENT
  Sex: Female

DRUGS (4)
  1. PALEXIA RETARD [Suspect]
     Indication: PROCEDURAL PAIN
     Route: 048
  2. PALEXIA RETARD [Suspect]
     Indication: PROCEDURAL PAIN
     Route: 048
  3. PALEXIA RETARD [Suspect]
     Indication: PROCEDURAL PAIN
     Route: 048
  4. PALEXIA RETARD [Suspect]
     Indication: PROCEDURAL PAIN
     Route: 048

REACTIONS (1)
  - Muscle spasms [Recovered/Resolved]
